FAERS Safety Report 15742636 (Version 2)
Quarter: 2019Q1

REPORT INFORMATION
  Report Type: Report from Study
  Country: US (occurrence: US)
  Receive Date: 20181219
  Receipt Date: 20190115
  Transmission Date: 20190417
  Serious: Yes (Other)
  Sender: FDA-Public Use
  Company Number: US-AMGEN-USASL2018180632

PATIENT
  Age: 47 Year
  Sex: Female

DRUGS (19)
  1. HYDROCODONE/ACETAMINOPHEN [Concomitant]
     Active Substance: ACETAMINOPHEN\HYDROCODONE
     Indication: LUMBAR SPINAL STENOSIS
     Dosage: UNK UNK, AS NECESSARY, UD 10 DAYS
     Route: 065
     Dates: start: 20160614
  2. VALIUM [Concomitant]
     Active Substance: DIAZEPAM
     Dosage: 10 MG, QID
     Route: 048
     Dates: start: 20130807
  3. MECLIZINE HCL [Concomitant]
     Active Substance: MECLIZINE HYDROCHLORIDE
     Indication: VERTIGO POSITIONAL
     Dosage: 25 MG, TID, 30 DAYS
     Route: 048
     Dates: start: 20181218
  4. PROTONIX [Concomitant]
     Active Substance: PANTOPRAZOLE SODIUM
     Dosage: 40 MG, UNK, UD
     Route: 048
  5. SPIRONOLACTONE. [Concomitant]
     Active Substance: SPIRONOLACTONE
     Dosage: 50 MG, QD
     Route: 048
     Dates: start: 20180905
  6. NEURONTIN [Concomitant]
     Active Substance: GABAPENTIN
     Dosage: 600 MG, TID, 30 DAYS
     Route: 065
     Dates: start: 20150619
  7. MAXALT [Concomitant]
     Active Substance: RIZATRIPTAN BENZOATE
     Dosage: 10 MG, UNK, UD 30 DAYS
     Route: 048
     Dates: start: 20181218
  8. NASACORT AQ [Concomitant]
     Active Substance: TRIAMCINOLONE ACETONIDE
     Dosage: UNK UNK, QD, 55 MCG/ACT
     Route: 065
     Dates: start: 20130807
  9. BENADRYL [Concomitant]
     Active Substance: DIPHENHYDRAMINE HYDROCHLORIDE
     Indication: HYPERSENSITIVITY
     Dosage: 25 MG, UNK, UD
     Route: 048
     Dates: start: 20180905
  10. ZANTAC [Concomitant]
     Active Substance: RANITIDINE HYDROCHLORIDE
     Dosage: 150 MG, BID
     Route: 048
     Dates: start: 20140908
  11. AIMOVIG [Suspect]
     Active Substance: ERENUMAB-AOOE
     Indication: MIGRAINE WITHOUT AURA
     Dosage: 70 MG, UNK
     Route: 065
     Dates: start: 2018, end: 2018
  12. AIMOVIG [Suspect]
     Active Substance: ERENUMAB-AOOE
     Dosage: UNK (REDUCED DOSE)
     Route: 065
     Dates: start: 20181217
  13. TRAZODONE [Concomitant]
     Active Substance: TRAZODONE HYDROCHLORIDE
     Dosage: 300 MG, QHS
     Route: 048
     Dates: start: 20180905
  14. FLORASTOR [Concomitant]
     Active Substance: SACCHAROMYCES CEREVISIAE
     Dosage: 250 MG, QD
     Route: 048
     Dates: start: 20180905
  15. PROMETHAZINE HCL [Concomitant]
     Active Substance: PROMETHAZINE HYDROCHLORIDE
     Indication: NAUSEA
     Dosage: 25 MG, AS NECESSARY, UD 10 DAYS/ 50 MG, UNK, UD 30 DAYS
     Route: 048
     Dates: start: 20180821
  16. XYZAL [Concomitant]
     Active Substance: LEVOCETIRIZINE DIHYDROCHLORIDE
     Dosage: 5 MG, BID
     Route: 065
     Dates: start: 20160215
  17. DOXYCYCLINE HYCLATE. [Concomitant]
     Active Substance: DOXYCYCLINE HYCLATE
     Dosage: 100 MG, QD
     Route: 065
     Dates: start: 20130807
  18. PROAIR HFA [Concomitant]
     Active Substance: ALBUTEROL SULFATE
     Dosage: UNK UNK, QD, 108 (90 BASE)
     Route: 065
     Dates: start: 20130807
  19. ZANAFLEX [Concomitant]
     Active Substance: TIZANIDINE HYDROCHLORIDE
     Indication: MYALGIA
     Dosage: 4 MG, UNK, UD 30 DAYS/ QID
     Route: 048
     Dates: start: 20180718

REACTIONS (2)
  - Inappropriate schedule of product administration [Unknown]
  - Seizure [Recovering/Resolving]

NARRATIVE: CASE EVENT DATE: 2018
